FAERS Safety Report 8464827-1 (Version None)
Quarter: 2012Q2

REPORT INFORMATION
  Report Type: 
  Country: None (occurrence: None)
  Receive Date: 20120626
  Receipt Date: 20120620
  Transmission Date: 20120825
  Serious: Yes (Other)
  Sender: FDA-Public Use
  Company Number: JP-BAYER-2012-047740

PATIENT
  Age: 69 Year
  Sex: Male
  Weight: 63 kg

DRUGS (8)
  1. SORAFENIB (RAF KINASE INHIBITOR) [Suspect]
     Indication: RENAL CELL CARCINOMA
     Dosage: 200 MG, BID
     Route: 048
     Dates: start: 20090805
  2. PERINDOPRIL ERBUMINE [Concomitant]
     Dosage: 4 MG, OM
     Route: 048
  3. LENIMEC [Concomitant]
     Indication: HYPERTENSION
     Dosage: UNK
     Route: 048
  4. NIFEDIPINE [Concomitant]
     Dosage: 40 MG, QD
     Route: 048
     Dates: start: 20090823
  5. SORAFENIB (RAF KINASE INHIBITOR) [Suspect]
     Dosage: 800 MG, UNK
     Dates: start: 20090819, end: 20120521
  6. AMARYL [Concomitant]
     Dosage: 1 MG, OM
     Route: 048
     Dates: start: 20080509
  7. ZIRUVATE [Concomitant]
     Dosage: 30 MG, TID
     Route: 048
     Dates: end: 20090822
  8. DILTIAZEM HCL [Concomitant]
     Dosage: DAILY DOSE 90 MG
     Route: 048
     Dates: start: 20080509

REACTIONS (4)
  - PALMAR-PLANTAR ERYTHRODYSAESTHESIA SYNDROME [None]
  - LIPASE INCREASED [None]
  - RETINAL VEIN OCCLUSION [None]
  - HYPERTENSION [None]
